FAERS Safety Report 12804622 (Version 10)
Quarter: 2017Q4

REPORT INFORMATION
  Report Type: Report from Study
  Country: CA (occurrence: CA)
  Receive Date: 20161003
  Receipt Date: 20171031
  Transmission Date: 20180320
  Serious: Yes (Hospitalization, Other)
  Sender: FDA-Public Use
  Company Number: CA-GLAXOSMITHKLINE-CA2016GSK141973

PATIENT
  Age: 70 Year
  Sex: Female
  Weight: 69 kg

DRUGS (39)
  1. DICLOFENAC SODIUM. [Suspect]
     Active Substance: DICLOFENAC SODIUM
     Indication: PRODUCT USED FOR UNKNOWN INDICATION
     Dosage: UNK
     Dates: start: 20160223
  2. XOLAIR [Suspect]
     Active Substance: OMALIZUMAB
     Dosage: 150 MG, EVERY 4 WEEKS
     Route: 058
     Dates: start: 20130315
  3. XOLAIR [Suspect]
     Active Substance: OMALIZUMAB
     Dosage: UNK
     Route: 058
     Dates: start: 20170221
  4. UNIPHYL [Concomitant]
     Active Substance: THEOPHYLLINE ANHYDROUS
  5. ALVESCO [Concomitant]
     Active Substance: CICLESONIDE
  6. TIOTROPIUM [Concomitant]
     Active Substance: TIOTROPIUM
  7. XOLAIR [Suspect]
     Active Substance: OMALIZUMAB
     Dosage: 150 MG, EVERY 4 WEEKS
     Route: 058
     Dates: start: 20151027
  8. XOLAIR [Suspect]
     Active Substance: OMALIZUMAB
     Dosage: 150 MG, EVERY 4 WEEKS
     Route: 058
     Dates: start: 20160510
  9. RAMIPRIL. [Concomitant]
     Active Substance: RAMIPRIL
  10. XOLAIR [Suspect]
     Active Substance: OMALIZUMAB
     Indication: ASTHMA
     Dosage: 150 MG, EVERY 4 WEEKS
     Route: 058
     Dates: start: 20120928
  11. XOLAIR [Suspect]
     Active Substance: OMALIZUMAB
     Dosage: 150 MG, EVERY 4 WEEKS
     Route: 058
     Dates: start: 20130516
  12. XOLAIR [Suspect]
     Active Substance: OMALIZUMAB
     Dosage: 150 MG, EVERY 4 WEEKS
     Route: 058
     Dates: start: 20160413
  13. ACTONEL [Concomitant]
     Active Substance: RISEDRONATE SODIUM
  14. HYDROCHLOROTHIAZIDE. [Concomitant]
     Active Substance: HYDROCHLOROTHIAZIDE
  15. DOCUSATE SODIUM. [Concomitant]
     Active Substance: DOCUSATE SODIUM
  16. LIPITOR [Concomitant]
     Active Substance: ATORVASTATIN CALCIUM
  17. SINGULAIR [Concomitant]
     Active Substance: MONTELUKAST SODIUM
  18. LASIX [Concomitant]
     Active Substance: FUROSEMIDE
  19. QUETIAPINE. [Concomitant]
     Active Substance: QUETIAPINE
  20. XOLAIR [Suspect]
     Active Substance: OMALIZUMAB
     Dosage: 150 MG, EVERY 4 WEEKS
     Route: 058
     Dates: start: 20140219
  21. XOLAIR [Suspect]
     Active Substance: OMALIZUMAB
     Dosage: 150 MG, EVERY 4 WEEKS
     Route: 058
     Dates: start: 20160607
  22. XOLAIR [Suspect]
     Active Substance: OMALIZUMAB
     Dosage: UNK
     Route: 058
     Dates: start: 20170321
  23. SEREVENT DISKUS [Concomitant]
     Active Substance: SALMETEROL XINAFOATE
  24. FERROUS FUMARATE [Concomitant]
     Active Substance: FERROUS FUMARATE
  25. PANTOPRAZOLE [Concomitant]
     Active Substance: PANTOPRAZOLE
  26. ERGOCALCIFEROL (VITAMIN D) [Concomitant]
     Active Substance: ERGOCALCIFEROL
  27. ADVAIR HFA [Concomitant]
     Active Substance: FLUTICASONE PROPIONATE\SALMETEROL XINAFOATE
  28. EFFEXOR [Concomitant]
     Active Substance: VENLAFAXINE HYDROCHLORIDE
  29. SPIRIVA [Concomitant]
     Active Substance: TIOTROPIUM BROMIDE MONOHYDRATE
  30. VENTOLIN [Concomitant]
     Active Substance: ALBUTEROL SULFATE
     Dosage: UNK
     Dates: start: 201306
  31. ENALAPRIL [Concomitant]
     Active Substance: ENALAPRIL
  32. PREDNISONE. [Concomitant]
     Active Substance: PREDNISONE
     Dosage: UNK
     Dates: end: 20141026
  33. CALCIUM [Concomitant]
     Active Substance: CALCIUM
  34. XOLAIR [Suspect]
     Active Substance: OMALIZUMAB
     Dosage: 150 MG, EVERY 4 WEEKS
     Route: 058
     Dates: start: 20160119
  35. NORVASC [Concomitant]
     Active Substance: AMLODIPINE BESYLATE
  36. THEOPHYLLINE [Concomitant]
     Active Substance: THEOPHYLLINE ANHYDROUS
  37. ASPIRIN. [Concomitant]
     Active Substance: ASPIRIN
  38. AMLODIPINE [Concomitant]
     Active Substance: AMLODIPINE BESYLATE
  39. ATORVASTATIN [Concomitant]
     Active Substance: ATORVASTATIN

REACTIONS (45)
  - Delirium [Unknown]
  - Fall [Unknown]
  - Nasopharyngitis [Unknown]
  - Pneumonia [Unknown]
  - Respiratory tract congestion [Unknown]
  - Influenza [Unknown]
  - Cough [Recovered/Resolved]
  - Electrolyte imbalance [Recovering/Resolving]
  - Pain [Recovering/Resolving]
  - Aphasia [Unknown]
  - Contusion [Recovering/Resolving]
  - Blood sodium decreased [Unknown]
  - Gait disturbance [Unknown]
  - Drug ineffective [Unknown]
  - Dyspnoea [Recovered/Resolved]
  - Renal failure [Unknown]
  - Transient ischaemic attack [Unknown]
  - Asthenia [Unknown]
  - Condition aggravated [Unknown]
  - Gastrooesophageal reflux disease [Unknown]
  - Lower respiratory tract infection [Unknown]
  - Loss of consciousness [Unknown]
  - Dysarthria [Unknown]
  - Confusional state [Unknown]
  - Hypoventilation [Unknown]
  - Swelling [Recovering/Resolving]
  - Respiratory rate increased [Unknown]
  - Rales [Unknown]
  - Blood pressure increased [Unknown]
  - Forced expiratory volume decreased [Unknown]
  - Wheezing [Recovered/Resolved]
  - Spinal fracture [Recovering/Resolving]
  - Infection [Recovered/Resolved]
  - Rectal haemorrhage [Recovered/Resolved]
  - Productive cough [Unknown]
  - Concomitant disease aggravated [Unknown]
  - Dizziness [Unknown]
  - Insomnia [Unknown]
  - Asthma [Recovered/Resolved]
  - Choking [Unknown]
  - Sputum discoloured [Unknown]
  - Swollen tongue [Unknown]
  - Infection [Unknown]
  - Weight decreased [Unknown]
  - Blood potassium decreased [Unknown]

NARRATIVE: CASE EVENT DATE: 20121210
